FAERS Safety Report 7735703-4 (Version None)
Quarter: 2011Q3

REPORT INFORMATION
  Report Type: 
  Country: None (occurrence: None)
  Receive Date: 20110908
  Receipt Date: 20110907
  Transmission Date: 20111222
  Serious: Yes (Hospitalization)
  Sender: FDA-Public Use
  Company Number: IT-BRISTOL-MYERS SQUIBB COMPANY-15795727

PATIENT
  Age: 75 Year
  Sex: Female

DRUGS (4)
  1. VOLTAREN [Suspect]
     Indication: NECK PAIN
     Dosage: INT ON 25FEB10 VOLTAREN 100MG MODIFIED RELEASE CAPS 1 DF= 1UNIT
     Route: 048
     Dates: start: 20100222
  2. METFORMIN HCL [Concomitant]
  3. ZESTORETIC [Concomitant]
  4. COUMADIN [Suspect]
     Dosage: INT ON 27FEB10 AND RESTARTED 1DF=1 UNIT
     Route: 048
     Dates: start: 20000227

REACTIONS (2)
  - MELAENA [None]
  - EROSIVE DUODENITIS [None]
